FAERS Safety Report 6141755-8 (Version None)
Quarter: 2009Q2

REPORT INFORMATION
  Report Type: 
  Country: None (occurrence: None)
  Receive Date: 20090402
  Receipt Date: 20090210
  Transmission Date: 20091009
  Serious: Yes (Other)
  Sender: FDA-Public Use
  Company Number: US-ABBOTT-08P-163-0475376-00

PATIENT
  Sex: Female
  Weight: 103.06 kg

DRUGS (5)
  1. LUPRON DEPOT [Suspect]
     Indication: HAEMORRHAGE
     Route: 030
     Dates: start: 20080729
  2. LUPRON DEPOT [Suspect]
     Indication: ENDOMETRIOSIS
  3. UNNAMED MEDICATION [Concomitant]
     Indication: BLOOD PRESSURE
     Route: 048
  4. HYDROCHLOROTHIAZIDE [Concomitant]
     Indication: HYPERTENSION
  5. CARTIA XT [Concomitant]
     Indication: HYPERTENSION

REACTIONS (9)
  - ABDOMINAL PAIN [None]
  - DRUG INEFFECTIVE [None]
  - DYSMENORRHOEA [None]
  - FACE OEDEMA [None]
  - HAEMORRHAGE [None]
  - HOT FLUSH [None]
  - HYPERHIDROSIS [None]
  - METRORRHAGIA [None]
  - WEIGHT INCREASED [None]
